FAERS Safety Report 7514770-7 (Version None)
Quarter: 2011Q2

REPORT INFORMATION
  Report Type: 
  Country: None (occurrence: None)
  Receive Date: 20110520
  Receipt Date: 20110508
  Transmission Date: 20111010
  Serious: Yes (Other)
  Sender: FDA-Public Use
  Company Number: PRED20110011

PATIENT
  Age: 38 Year
  Sex: Female

DRUGS (2)
  1. PREDNISONE [Suspect]
     Indication: MULTIPLE SCLEROSIS RELAPSE
     Dosage: 80 MG, 1 IN 1 D, ORAL
     Route: 048
  2. GLATIRAMER ACETATE (GLATIRAMER ACETATE) (GLATIRAMER ACETATE) [Concomitant]

REACTIONS (3)
  - POSTERIOR REVERSIBLE ENCEPHALOPATHY SYNDROME [None]
  - CORTICAL LAMINAR NECROSIS [None]
  - CEREBRAL HAEMORRHAGE [None]
